FAERS Safety Report 10381407 (Version 1)
Quarter: 2014Q1

REPORT INFORMATION
  Report Type: Spontaneous
  Country: US (occurrence: None)
  Receive Date: 20140306
  Receipt Date: 20140306
  Transmission Date: 20141002
  Serious: Yes (Hospitalization, Other)
  Sender: FDA-Public Use
  Company Number: 163-21880-13030061

PATIENT
  Age: 82 Year
  Sex: Male
  Weight: 55.34 kg

DRUGS (22)
  1. REVLIMID (LENALIDOMIDE) (15 MILLIGRAM, CAPSULES) [Suspect]
     Indication: PLASMA CELL MYELOMA
     Dosage: 21 IN 28D, PO
     Route: 048
     Dates: start: 20120130, end: 20120627
  2. FINASTERIDE (FINASTERIDE) [Concomitant]
  3. ZOMETA (ZOLEDRONIC ACID) [Concomitant]
  4. DEXAMETHASONE (DEXAMETHASONE) [Concomitant]
  5. ZOLOFT (SERTRALINE HYDROCHLORIDE) [Concomitant]
  6. PERCOCET (OXYCOCET) [Concomitant]
  7. VITAMIN D2 (ERGOCALCIFEROL) [Concomitant]
  8. ATIVAN (LORAZEPAM) [Concomitant]
  9. OXYCODONE (OXYCODONE) [Concomitant]
  10. HYDROCHLOROTHIAZIDE (HYDROCHLOROTHIAZIDE) [Concomitant]
  11. OMEPRAZOLE (OMEPRAZOLE) [Concomitant]
  12. CENTRUM SILVER (CENTRUM SILVER) [Concomitant]
  13. SENNALAX-C (COLOXYL WITH SENNA) [Concomitant]
  14. COMPAZINE (PROCHLORPERAZINE EDISYLATE) [Concomitant]
  15. ASCRIPTIN (ASCRIPTIN) [Concomitant]
  16. DRISDOL (ERGOCALCIFEROL) [Concomitant]
  17. BUSPIRONE (BUSPIRONE) [Concomitant]
  18. SERTRALINE (SERTRALINE) [Concomitant]
  19. MYCOSTATIN (NYSTATIN) [Concomitant]
  20. PRILOSEC (OMEPRAZOLE) [Concomitant]
  21. LACTULOSE (LACTULOSE) [Concomitant]
  22. BUSPAR (BUSPIRONE HYDROCHLORIDE) [Concomitant]

REACTIONS (4)
  - Cholecystitis acute [None]
  - Pancreatitis [None]
  - Oedema peripheral [None]
  - Gynaecomastia [None]
